FAERS Safety Report 13747492 (Version 3)
Quarter: 2017Q4

REPORT INFORMATION
  Report Type: Spontaneous
  Country: RU (occurrence: RU)
  Receive Date: 20170712
  Receipt Date: 20171031
  Transmission Date: 20180320
  Serious: Yes (Death, Hospitalization)
  Sender: FDA-Public Use
  Company Number: RU-BIOMARINAP-RU-2017-114655

PATIENT
  Age: 10 Year
  Sex: Female
  Weight: 20 kg

DRUGS (1)
  1. ALDURAZYME [Suspect]
     Active Substance: LARONIDASE
     Indication: MUCOPOLYSACCHARIDOSIS I
     Dosage: 100 IU/KG, QW
     Route: 041
     Dates: start: 2014, end: 201706

REACTIONS (2)
  - Multiple organ dysfunction syndrome [Fatal]
  - General physical health deterioration [Unknown]
